FAERS Safety Report 20997754 (Version 1)
Quarter: 2022Q2

REPORT INFORMATION
  Report Type: Spontaneous
  Country: SA (occurrence: SA)
  Receive Date: 20220623
  Receipt Date: 20220623
  Transmission Date: 20220721
  Serious: Yes (Hospitalization, Other)
  Sender: FDA-Public Use
  Company Number: SA-NATCOUSA-2022-NATCOUSA-000050

PATIENT
  Age: 54 Year
  Sex: Female

DRUGS (1)
  1. LETROZOLE [Suspect]
     Active Substance: LETROZOLE
     Indication: Invasive lobular breast carcinoma
     Route: 048

REACTIONS (2)
  - Skin cancer metastatic [Recovered/Resolved]
  - Therapy partial responder [Unknown]
